FAERS Safety Report 11289152 (Version 2)
Quarter: 2015Q4

REPORT INFORMATION
  Report Type: Report from Study
  Country: US (occurrence: US)
  Receive Date: 20150721
  Receipt Date: 20151005
  Transmission Date: 20160304
  Serious: No
  Sender: FDA-Public Use
  Company Number: PHEH2015US010940

PATIENT
  Age: 28 Year
  Sex: Female
  Weight: 96.62 kg

DRUGS (9)
  1. TOPAMAX [Concomitant]
     Active Substance: TOPIRAMATE
     Indication: MIGRAINE
     Dosage: 100 OT, QD
     Route: 048
  2. EXTAVIA [Suspect]
     Active Substance: INTERFERON BETA-1B
     Dosage: 0.25 MG (1 ML, WEEKS 7+),QOD
     Route: 058
     Dates: end: 201507
  3. EXTAVIA [Suspect]
     Active Substance: INTERFERON BETA-1B
     Dosage: 0.75 MG (0.75 ML, WEEKS 5-6), QOD
     Route: 058
  4. FLUOXETINE [Concomitant]
     Active Substance: FLUOXETINE HYDROCHLORIDE
     Indication: DEPRESSION
     Dosage: 40 OT, QD
     Route: 048
  5. EXTAVIA [Suspect]
     Active Substance: INTERFERON BETA-1B
     Indication: MULTIPLE SCLEROSIS
     Dosage: 0.0625 MG (0.25 ML, WEEK1-2), QOD
     Route: 058
     Dates: start: 20150106
  6. ADDERALL [Concomitant]
     Active Substance: AMPHETAMINE ASPARTATE\AMPHETAMINE SULFATE\DEXTROAMPHETAMINE SACCHARATE\DEXTROAMPHETAMINE SULFATE
     Indication: ATTENTION DEFICIT/HYPERACTIVITY DISORDER
     Dosage: 10 OT, QD
     Route: 048
  7. VITAMIN D [Concomitant]
     Active Substance: CHOLECALCIFEROL
     Indication: VITAMIN D DEFICIENCY
     Dosage: 5000 OT, QD
     Route: 048
  8. BACLOFEN. [Concomitant]
     Active Substance: BACLOFEN
     Indication: MUSCLE SPASMS
     Dosage: 10 OT, QD
     Route: 048
  9. EXTAVIA [Suspect]
     Active Substance: INTERFERON BETA-1B
     Dosage: 0.125 MG (0.5 ML, WEEKS 3-4), QOD
     Route: 058

REACTIONS (11)
  - Pruritus [Recovered/Resolved]
  - Injection site pruritus [Recovered/Resolved]
  - Accidental exposure to product [Unknown]
  - Myalgia [Recovered/Resolved]
  - Injection site erythema [Recovered/Resolved]
  - Rash [Recovered/Resolved]
  - Haemorrhage [Unknown]
  - Paraesthesia [Unknown]
  - Injection site pain [Recovered/Resolved]
  - Malaise [Recovered/Resolved]
  - Pain [Recovered/Resolved]

NARRATIVE: CASE EVENT DATE: 20150306
